FAERS Safety Report 4766547-3 (Version None)
Quarter: 2005Q3

REPORT INFORMATION
  Report Type: 
  Country: None (occurrence: None)
  Receive Date: 20050909
  Receipt Date: 20050829
  Transmission Date: 20060218
  Serious: Yes (Hospitalization)
  Sender: FDA-Public Use
  Company Number: 2005111351

PATIENT
  Sex: Female

DRUGS (10)
  1. VIAGRA [Suspect]
     Indication: PULMONARY HYPERTENSION
     Dosage: 75 MG (25 MG, 3 IN 1 D), ORAL
     Route: 048
     Dates: start: 20040601
  2. PHENYTOIN [Concomitant]
  3. AMLODIPINE [Concomitant]
  4. FUROSEMIDE [Concomitant]
  5. PRAVACHOL [Concomitant]
  6. VITAMIN C (VITAMIN C) [Concomitant]
  7. POTASSIUM (POTASSIUM) [Concomitant]
  8. VITAMIN D [Concomitant]
  9. CLONAZEPAM [Concomitant]
  10. ASCORBIC ACID [Concomitant]

REACTIONS (4)
  - ABASIA [None]
  - INTENTIONAL MISUSE [None]
  - VIRAL INFECTION [None]
  - WEIGHT INCREASED [None]
